FAERS Safety Report 8282819-2 (Version None)
Quarter: 2012Q2

REPORT INFORMATION
  Report Type: 
  Country: None (occurrence: None)
  Receive Date: 20120413
  Receipt Date: 20120404
  Transmission Date: 20120825
  Serious: Yes (Hospitalization, Other)
  Sender: FDA-Public Use
  Company Number: PHHY2012BR017277

PATIENT
  Sex: Female

DRUGS (1)
  1. DIOVAN HCT [Suspect]
     Indication: HYPERTENSION
     Dosage: 1 DF (160/12.5 MG), UNK
     Dates: start: 20100501

REACTIONS (10)
  - SWELLING [None]
  - OEDEMA PERIPHERAL [None]
  - MOOD ALTERED [None]
  - VASCULAR OCCLUSION [None]
  - WOUND [None]
  - IMPATIENCE [None]
  - FALL [None]
  - POOR PERIPHERAL CIRCULATION [None]
  - NERVOUSNESS [None]
  - PAIN IN EXTREMITY [None]
